FAERS Safety Report 10816506 (Version 1)
Quarter: 2015Q1

REPORT INFORMATION
  Report Type: Report from Study
  Country: NL (occurrence: NL)
  Receive Date: 20150218
  Receipt Date: 20150218
  Transmission Date: 20150721
  Serious: Yes (Other)
  Sender: FDA-Public Use
  Company Number: NL-BAYER-2015-018346

PATIENT
  Age: 56 Year
  Sex: Female
  Weight: 53 kg

DRUGS (1)
  1. GADOVIST [Suspect]
     Active Substance: GADOBUTROL
     Indication: NUCLEAR MAGNETIC RESONANCE IMAGING
     Dosage: 5 ML, 1 ML/SEC, 0.1 MMOL/KG
     Route: 042
     Dates: start: 20150204, end: 20150204

REACTIONS (6)
  - Circulatory collapse [Recovered/Resolved]
  - Vomiting [Recovered/Resolved]
  - Gastroenteritis [Recovered/Resolved]
  - Hyperhidrosis [Recovered/Resolved]
  - Syncope [Recovered/Resolved]
  - Nausea [Recovered/Resolved]

NARRATIVE: CASE EVENT DATE: 20150204
